FAERS Safety Report 5091663-9 (Version None)
Quarter: 2006Q3

REPORT INFORMATION
  Report Type: 
  Country: None (occurrence: None)
  Receive Date: 20060824
  Receipt Date: 20060703
  Transmission Date: 20061208
  Serious: Yes (Disabling, Other)
  Sender: FDA-Public Use
  Company Number: 2006099692

PATIENT
  Age: 75 Year
  Sex: Male

DRUGS (1)
  1. ZYRTEC [Suspect]
     Indication: RHINITIS ALLERGIC
     Dosage: 10 MG, ORAL
     Route: 048
     Dates: start: 20060424, end: 20060506

REACTIONS (1)
  - RENAL PAIN [None]
